FAERS Safety Report 22126196 (Version 1)
Quarter: 2023Q1

REPORT INFORMATION
  Report Type: Spontaneous
  Country: US (occurrence: US)
  Receive Date: 20230322
  Receipt Date: 20230322
  Transmission Date: 20230418
  Serious: No
  Sender: FDA-Public Use
  Company Number: US-ALLERGAN-2231841US

PATIENT
  Age: 44 Year
  Sex: Female
  Weight: 63.502 kg

DRUGS (1)
  1. LATISSE [Suspect]
     Active Substance: BIMATOPROST
     Indication: Growth of eyelashes
     Dosage: UNK
     Dates: start: 2017, end: 20220923

REACTIONS (2)
  - Eyelid irritation [Unknown]
  - Madarosis [Recovering/Resolving]

NARRATIVE: CASE EVENT DATE: 20220917
